FAERS Safety Report 25651756 (Version 1)
Quarter: 2025Q3

REPORT INFORMATION
  Report Type: Other
  Country: US (occurrence: US)
  Receive Date: 20250806
  Receipt Date: 20250806
  Transmission Date: 20251021
  Serious: Yes (Hospitalization, Other)
  Sender: EVOKE PHARMA
  Company Number: US-EVOKE PHARMA, INC.-2024EVO000076

PATIENT
  Age: 50 Year
  Sex: Male

DRUGS (2)
  1. METOCLOPRAMIDE HYDROCHLORIDE [Suspect]
     Active Substance: METOCLOPRAMIDE HYDROCHLORIDE
     Indication: Bacteraemia
     Route: 065
  2. VANCOMYCIN [Suspect]
     Active Substance: VANCOMYCIN
     Indication: Bacteraemia
     Route: 065

REACTIONS (3)
  - Pyrexia [Unknown]
  - Rash [Unknown]
  - Acute kidney injury [Unknown]
